FAERS Safety Report 4692214-0 (Version None)
Quarter: 2005Q2

REPORT INFORMATION
  Report Type: 
  Country: None (occurrence: None)
  Receive Date: 20050614
  Receipt Date: 20050527
  Transmission Date: 20051028
  Serious: Yes (Death)
  Sender: FDA-Public Use
  Company Number: DSA_26535_2005

PATIENT
  Age: 43 Year
  Sex: Female
  Weight: 57 kg

DRUGS (3)
  1. LORAZEPAM [Suspect]
     Dosage: TAB PO
     Route: 048
  2. AMOXAN [Suspect]
     Dosage: CAP PO
     Route: 048
  3. LEVOMEPROMAZINE MALEATE [Suspect]
     Dosage: DF PO
     Route: 048

REACTIONS (10)
  - ATROPHY [None]
  - CARDIAC DISORDER [None]
  - CARDIAC VENTRICULAR DISORDER [None]
  - COMPLETED SUICIDE [None]
  - INTENTIONAL MISUSE [None]
  - MULTIPLE DRUG OVERDOSE [None]
  - MYOCARDIAL FIBROSIS [None]
  - POISONING [None]
  - PULMONARY OEDEMA [None]
  - UNEVALUABLE EVENT [None]
